FAERS Safety Report 5227844-0 (Version None)
Quarter: 2007Q1

REPORT INFORMATION
  Report Type: 
  Country: None (occurrence: None)
  Receive Date: 20070202
  Receipt Date: 20070124
  Transmission Date: 20070707
  Serious: Yes (Hospitalization)
  Sender: FDA-Public Use
  Company Number: JP-PFIZER INC-2007005708

PATIENT
  Age: 36 Year
  Sex: Female

DRUGS (3)
  1. XALATAN [Suspect]
     Indication: GLAUCOMA
     Dosage: FREQ:FREQUENCY: QD
     Route: 031
  2. MIKELAN [Concomitant]
     Route: 031
  3. DETANTOL [Concomitant]
     Route: 031

REACTIONS (1)
  - PREMATURE LABOUR [None]
